FAERS Safety Report 18864914 (Version 1)
Quarter: 2021Q1

REPORT INFORMATION
  Report Type: Spontaneous
  Country: IE (occurrence: IE)
  Receive Date: 20210209
  Receipt Date: 20210209
  Transmission Date: 20210420
  Serious: Yes (Other)
  Sender: FDA-Public Use
  Company Number: IE-MICRO LABS LIMITED-ML2021-00366

PATIENT
  Age: 31 Year
  Sex: Male

DRUGS (3)
  1. LEVETIRACETAM. [Suspect]
     Active Substance: LEVETIRACETAM
     Indication: GENERALISED TONIC-CLONIC SEIZURE
  2. MIDAZOLAM. [Suspect]
     Active Substance: MIDAZOLAM
     Indication: GENERALISED TONIC-CLONIC SEIZURE
  3. PHENYTOIN. [Suspect]
     Active Substance: PHENYTOIN
     Indication: GENERALISED TONIC-CLONIC SEIZURE

REACTIONS (1)
  - Drug ineffective [Unknown]
